FAERS Safety Report 12231006 (Version 2)
Quarter: 2016Q2

REPORT INFORMATION
  Report Type: Spontaneous
  Country: US (occurrence: US)
  Receive Date: 20160401
  Receipt Date: 20160630
  Transmission Date: 20160815
  Serious: Yes (Death, Hospitalization)
  Sender: FDA-Public Use
  Company Number: US-JNJFOC-20160400022

PATIENT
  Age: 59 Year
  Sex: Male

DRUGS (3)
  1. XARELTO [Suspect]
     Active Substance: RIVAROXABAN
     Indication: PULMONARY EMBOLISM
     Route: 048
     Dates: start: 20140209, end: 20150210
  2. ASPIRIN. [Suspect]
     Active Substance: ASPIRIN
     Indication: PRODUCT USED FOR UNKNOWN INDICATION
     Route: 065
  3. XARELTO [Suspect]
     Active Substance: RIVAROXABAN
     Indication: DEEP VEIN THROMBOSIS
     Route: 048
     Dates: start: 20140209, end: 20150210

REACTIONS (6)
  - Urinary tract infection [Recovered/Resolved]
  - Sepsis [Fatal]
  - Haematuria [Recovered/Resolved]
  - Pneumonia [Fatal]
  - Acute kidney injury [Recovering/Resolving]
  - Cholangiocarcinoma [Fatal]

NARRATIVE: CASE EVENT DATE: 201406
